FAERS Safety Report 7629553-7 (Version None)
Quarter: 2011Q3

REPORT INFORMATION
  Report Type: 
  Country: None (occurrence: None)
  Receive Date: 20110722
  Receipt Date: 20110328
  Transmission Date: 20111222
  Serious: No
  Sender: FDA-Public Use
  Company Number: US-BAYER-2011-040018

PATIENT
  Sex: Female
  Weight: 56.236 kg

DRUGS (15)
  1. BETASERON [Suspect]
     Dosage: 0.25 MG, QOD
     Route: 058
  2. LISINOPRIL [Concomitant]
  3. NITROLINGUAL PUMPSPRAY [Concomitant]
  4. TOPAMAX [Concomitant]
  5. FISH OIL [Concomitant]
  6. AMBIEN [Concomitant]
  7. CITALOPRAM [Concomitant]
  8. CRESTOR [Concomitant]
  9. BUTALBITAL [Concomitant]
  10. PHENERGAN HCL [Concomitant]
  11. DILTIAZEM [Concomitant]
  12. HYDRALAZINE HCL [Concomitant]
  13. NITRO-DUR [Concomitant]
  14. ASPIRIN [Concomitant]
  15. PLAVIX [Concomitant]

REACTIONS (2)
  - PRURITUS [None]
  - ERYTHEMA [None]
